FAERS Safety Report 15057527 (Version 1)
Quarter: 2018Q2

REPORT INFORMATION
  Report Type: Spontaneous
  Country: FR (occurrence: FR)
  Receive Date: 20180625
  Receipt Date: 20180625
  Transmission Date: 20180711
  Serious: Yes (Death, Hospitalization)
  Sender: FDA-Public Use
  Company Number: FR-ACCORD-068602

PATIENT
  Age: 87 Year
  Sex: Female
  Weight: 53 kg

DRUGS (2)
  1. PREDNISONE. [Suspect]
     Active Substance: PREDNISONE
     Indication: RHEUMATOID ARTHRITIS
     Route: 048
     Dates: start: 20170621, end: 20170724
  2. METHOTREXATE. [Suspect]
     Active Substance: METHOTREXATE
     Indication: RHEUMATOID ARTHRITIS
     Route: 058
     Dates: start: 20170621, end: 20170717

REACTIONS (2)
  - Pneumocystis jirovecii pneumonia [Fatal]
  - Lymphopenia [Fatal]

NARRATIVE: CASE EVENT DATE: 20170719
